FAERS Safety Report 7891881-8 (Version None)
Quarter: 2011Q4

REPORT INFORMATION
  Report Type: 
  Country: None (occurrence: None)
  Receive Date: 20111103
  Receipt Date: 20110811
  Transmission Date: 20120403
  Serious: No
  Sender: FDA-Public Use
  Company Number: US-AMGEN-USASP2011040911

PATIENT
  Age: 14 Year
  Sex: Female

DRUGS (1)
  1. ENBREL [Suspect]
     Indication: JUVENILE ARTHRITIS
     Dosage: 25 MG, QWK
     Route: 058

REACTIONS (5)
  - VOMITING [None]
  - DIARRHOEA [None]
  - MYALGIA [None]
  - INFLUENZA LIKE ILLNESS [None]
  - PYREXIA [None]
